FAERS Safety Report 11809841 (Version 3)
Quarter: 2016Q1

REPORT INFORMATION
  Report Type: Report from Study
  Country: JP (occurrence: JP)
  Receive Date: 20151208
  Receipt Date: 20160108
  Transmission Date: 20160525
  Serious: Yes (Hospitalization, Other)
  Sender: FDA-Public Use
  Company Number: JP-ROCHE-1667414

PATIENT
  Age: 73 Year
  Sex: Male
  Weight: 57.2 kg

DRUGS (16)
  1. BLINDED RAMUCIRUMAB [Suspect]
     Active Substance: RAMUCIRUMAB
     Indication: ADENOCARCINOMA GASTRIC
     Route: 042
     Dates: start: 20151019
  2. SEIBULE [Concomitant]
     Active Substance: MIGLITOL
     Route: 065
     Dates: start: 20151019
  3. FEBURIC [Concomitant]
     Active Substance: FEBUXOSTAT
     Route: 065
     Dates: start: 20151023
  4. ALOXI [Concomitant]
     Active Substance: PALONOSETRON HYDROCHLORIDE
     Indication: PREMEDICATION
     Route: 065
     Dates: start: 20151019, end: 20151019
  5. DEXART [Concomitant]
     Active Substance: DEXAMETHASONE SODIUM PHOSPHATE
     Indication: PREMEDICATION
     Route: 065
     Dates: start: 20151019, end: 20151027
  6. POLARAMINE [Concomitant]
     Active Substance: DEXCHLORPHENIRAMINE MALEATE
     Indication: PREMEDICATION
     Route: 065
     Dates: start: 20151019, end: 20151027
  7. MANNITOL/SORBITOL [Concomitant]
     Indication: PREMEDICATION
     Route: 065
     Dates: start: 20151019, end: 20151027
  8. GRANISETRON [Concomitant]
     Active Substance: GRANISETRON
     Indication: PREMEDICATION
     Route: 065
     Dates: start: 20151019, end: 20151027
  9. HEPARINOID [Concomitant]
     Active Substance: CHONDROITIN SULFATE (BOVINE)
     Route: 065
     Dates: start: 20151022
  10. NORVASC [Concomitant]
     Active Substance: AMLODIPINE BESYLATE
     Route: 065
     Dates: start: 20150307
  11. CISPLATIN. [Suspect]
     Active Substance: CISPLATIN
     Indication: ADENOCARCINOMA GASTRIC
     Dosage: DAY 1/ 21 DAY CYCLE
     Route: 042
     Dates: start: 20151019
  12. ANOLEXINON [Concomitant]
     Route: 065
     Dates: start: 20151023
  13. ZANTAC [Concomitant]
     Active Substance: RANITIDINE HYDROCHLORIDE
     Indication: PREMEDICATION
     Route: 065
     Dates: start: 20151019, end: 20151027
  14. CAPECITABINE. [Suspect]
     Active Substance: CAPECITABINE
     Indication: ADENOCARCINOMA GASTRIC
     Dosage: DAY 1- DAY 14/ 21 DAY CYCLE
     Route: 048
     Dates: start: 20151019
  15. PROEMEND [Concomitant]
     Active Substance: FOSAPREPITANT
     Indication: PREMEDICATION
     Route: 065
     Dates: start: 20151019, end: 20151019
  16. EURODIN (ESTAZOLAM) [Concomitant]
     Route: 065
     Dates: start: 200203

REACTIONS (3)
  - Dehydration [Recovered/Resolved]
  - Blood creatinine increased [Recovered/Resolved]
  - Enterocolitis [Recovered/Resolved]

NARRATIVE: CASE EVENT DATE: 20151107
